FAERS Safety Report 10637399 (Version 2)
Quarter: 2015Q1

REPORT INFORMATION
  Report Type: Spontaneous
  Country: JP (occurrence: None)
  Receive Date: 20141204
  Receipt Date: 20150209
  Transmission Date: 20150720
  Serious: Yes (Life-Threatening, Hospitalization, Disabling, Other)
  Sender: FDA-Public Use
  Company Number: 2014MPI01541

PATIENT
  Age: 67 Year
  Sex: Male
  Weight: 77.6 kg

DRUGS (3)
  1. ADCETRIS [Suspect]
     Active Substance: BRENTUXIMAB VEDOTIN
     Indication: HODGKIN^S DISEASE
     Route: 041
     Dates: start: 20140826, end: 20140826
  2. ZOSYN [Suspect]
     Active Substance: PIPERACILLIN SODIUM\TAZOBACTAM SODIUM
     Indication: PRODUCT USED FOR UNKNOWN INDICATION
     Route: 042
     Dates: start: 20140904, end: 20140907
  3. PREDONINE [Suspect]
     Active Substance: PREDNISOLONE\PREDNISOLONE ACETATE\PREDNISOLONE SODIUM SUCCINATE
     Indication: CHRONIC KIDNEY DISEASE
     Route: 050
     Dates: start: 20140906

REACTIONS (10)
  - Tubulointerstitial nephritis [None]
  - Pancreatitis acute [None]
  - Peripheral sensory neuropathy [None]
  - Hypocalcaemia [None]
  - Febrile neutropenia [None]
  - Blood glucose increased [None]
  - Chronic kidney disease [None]
  - Condition aggravated [None]
  - Renal disorder [None]
  - Hyperglycaemia [None]

NARRATIVE: CASE EVENT DATE: 20140830
